FAERS Safety Report 4815478-9 (Version None)
Quarter: 2005Q4

REPORT INFORMATION
  Report Type: 
  Country: None (occurrence: None)
  Receive Date: 20051028
  Receipt Date: 20051028
  Transmission Date: 20060501
  Serious: Yes (Disabling, Other)
  Sender: FDA-Public Use
  Company Number: None

PATIENT
  Sex: Female
  Weight: 214.0978 kg

DRUGS (2)
  1. DETROL LA [Suspect]
     Indication: ENURESIS
  2. OXYTROL [Suspect]
     Indication: URINARY INCONTINENCE

REACTIONS (2)
  - ENURESIS [None]
  - URINARY INCONTINENCE [None]
